FAERS Safety Report 15296359 (Version 2)
Quarter: 2018Q3

REPORT INFORMATION
  Report Type: Spontaneous
  Country: US (occurrence: US)
  Receive Date: 20180820
  Receipt Date: 20180824
  Transmission Date: 20181010
  Serious: Yes (Other)
  Sender: FDA-Public Use
  Company Number: US-PFIZER INC-2018332747

PATIENT
  Sex: Female

DRUGS (1)
  1. LYRICA [Suspect]
     Active Substance: PREGABALIN
     Dosage: UNK

REACTIONS (6)
  - Back pain [Unknown]
  - Haemorrhage [Unknown]
  - Rash [Not Recovered/Not Resolved]
  - Pruritus [Unknown]
  - Nerve injury [Unknown]
  - Nervousness [Unknown]
